FAERS Safety Report 19588989 (Version 2)
Quarter: 2021Q4

REPORT INFORMATION
  Report Type: Spontaneous
  Country: CA (occurrence: CA)
  Receive Date: 20210721
  Receipt Date: 20211007
  Transmission Date: 20220304
  Serious: Yes (Other)
  Sender: FDA-Public Use
  Company Number: 2021A615546

PATIENT
  Sex: Male

DRUGS (13)
  1. CALQUENCE [Suspect]
     Active Substance: ACALABRUTINIB
     Indication: Chronic lymphocytic leukaemia
     Route: 048
     Dates: start: 20210223
  2. OMEPRAZOLE [Suspect]
     Active Substance: OMEPRAZOLE
     Route: 048
  3. CANDESARTAN CILEXETIL\HYDROCHLOROTHIAZIDE [Concomitant]
     Active Substance: CANDESARTAN CILEXETIL\HYDROCHLOROTHIAZIDE
  4. ATENOLOL [Concomitant]
     Active Substance: ATENOLOL
  5. VITAMIN D3 [Concomitant]
     Active Substance: CHOLECALCIFEROL
  6. CRESTOR [Concomitant]
     Active Substance: ROSUVASTATIN CALCIUM
  7. FINASTERIDE [Concomitant]
     Active Substance: FINASTERIDE
  8. LUTEIN [Concomitant]
     Active Substance: LUTEIN
  9. OLANZAPINE [Concomitant]
     Active Substance: OLANZAPINE
  10. TAMSULOSIN [Concomitant]
     Active Substance: TAMSULOSIN
  11. VITAMIN B12 [Concomitant]
     Active Substance: CYANOCOBALAMIN
  12. ZOPICLONE [Concomitant]
     Active Substance: ZOPICLONE
  13. RANITIDINE [Concomitant]
     Active Substance: RANITIDINE

REACTIONS (5)
  - Dyspepsia [Recovering/Resolving]
  - Gastrooesophageal reflux disease [Recovering/Resolving]
  - Rebound effect [Recovering/Resolving]
  - Gastrooesophageal reflux disease [Recovering/Resolving]
  - Dyspepsia [Recovering/Resolving]
